FAERS Safety Report 21368753 (Version 1)
Quarter: 2022Q3

REPORT INFORMATION
  Report Type: Spontaneous
  Country: FR (occurrence: FR)
  Receive Date: 20220923
  Receipt Date: 20220923
  Transmission Date: 20221027
  Serious: Yes (Life-Threatening, Hospitalization)
  Sender: FDA-Public Use
  Company Number: FR-002147023-NVSC2021FR148493

PATIENT

DRUGS (4)
  1. GOSERELIN [Suspect]
     Active Substance: GOSERELIN
     Indication: Breast cancer
     Dosage: 3.6 MILLIGRAM, EVERY 4 WEEKS
     Route: 058
     Dates: start: 20191022, end: 20210628
  2. GOSERELIN [Suspect]
     Active Substance: GOSERELIN
     Dosage: 3.6 MILLIGRAM, EVERY 4 WEEKS
     Route: 058
     Dates: start: 20210729, end: 20220405
  3. ZOLADEX [Suspect]
     Active Substance: GOSERELIN ACETATE
     Indication: Breast cancer
     Dosage: UNK
     Route: 065
  4. LETROZOLE [Suspect]
     Active Substance: LETROZOLE
     Indication: Breast cancer
     Dosage: 2.5 MG, QD
     Route: 048
     Dates: start: 20191021, end: 20220501

REACTIONS (1)
  - Acute myeloid leukaemia [Recovered/Resolved]

NARRATIVE: CASE EVENT DATE: 20210629
